FAERS Safety Report 16659850 (Version 1)
Quarter: 2019Q3

REPORT INFORMATION
  Report Type: Spontaneous
  Country: US (occurrence: US)
  Receive Date: 20190618
  Receipt Date: 20190618
  Transmission Date: 20191004
  Serious: No
  Sender: FDA-Public Use
  Company Number: None

PATIENT
  Age: 64 Year
  Sex: Female

DRUGS (1)
  1. ZOLEDRONIC ACID 5 MG/100 ML, 5 MG/100ML [Suspect]
     Active Substance: ZOLEDRONIC ACID
     Indication: OSTEOPOROSIS
     Dosage: ?          OTHER FREQUENCY:15 MINS EVERY YEAR;?
     Route: 042
     Dates: start: 201507

REACTIONS (2)
  - Gastrointestinal disorder [None]
  - Urinary tract infection [None]
